FAERS Safety Report 8584114-0 (Version None)
Quarter: 2012Q3

REPORT INFORMATION
  Report Type: 
  Country: None (occurrence: None)
  Receive Date: 20120810
  Receipt Date: 20120803
  Transmission Date: 20120928
  Serious: No
  Sender: FDA-Public Use
  Company Number: US-009507513-1206USA02190

PATIENT

DRUGS (8)
  1. PRAVASTATIN SODIUM [Concomitant]
  2. PRINIVIL [Suspect]
     Route: 048
  3. AMLODIPINE BESYLATE [Concomitant]
  4. PRILOSEC [Concomitant]
  5. GLYBURIDE [Concomitant]
  6. FUROSEMIDE [Concomitant]
  7. SILDENAFIL CITRATE [Concomitant]
  8. LABETALOL HYDROCHLORIDE [Concomitant]

REACTIONS (1)
  - ANGIOEDEMA [None]
